FAERS Safety Report 9685869 (Version 1)
Quarter: 2013Q4

REPORT INFORMATION
  Report Type: Spontaneous
  Country: US (occurrence: US)
  Receive Date: 20131113
  Receipt Date: 20131113
  Transmission Date: 20140711
  Serious: No
  Sender: FDA-Public Use
  Company Number: US-BAYER-2013-132046

PATIENT
  Sex: Male

DRUGS (1)
  1. NEXAVAR [Suspect]
     Dosage: MORE THAN 8 WEEKS

REACTIONS (2)
  - Local swelling [None]
  - Pain [None]
